FAERS Safety Report 24421562 (Version 1)
Quarter: 2024Q4

REPORT INFORMATION
  Report Type: Spontaneous
  Country: US (occurrence: US)
  Receive Date: 20241010
  Receipt Date: 20241010
  Transmission Date: 20250115
  Serious: No
  Sender: ZYDUS PHARM
  Company Number: ZYD-24-AE-536

PATIENT

DRUGS (1)
  1. ESTRADIOL [Suspect]
     Active Substance: ESTRADIOL
     Indication: Product used for unknown indication
     Dosage: 0.1 MILLIGRAM PER DAY, TWICE WEEKLY
     Route: 062
     Dates: start: 202407, end: 202408

REACTIONS (3)
  - Application site hypersensitivity [Unknown]
  - Application site irritation [Unknown]
  - Application site erythema [Unknown]

NARRATIVE: CASE EVENT DATE: 20240701
